FAERS Safety Report 14360144 (Version 3)
Quarter: 2020Q4

REPORT INFORMATION
  Report Type: Spontaneous
  Country: DE (occurrence: DE)
  Receive Date: 20180106
  Receipt Date: 20201123
  Transmission Date: 20210113
  Serious: Yes (Hospitalization, Disabling, Other)
  Sender: FDA-Public Use
  Company Number: DE-AUROBINDO-AUR-APL-2018-000515

PATIENT
  Age: 38 Year
  Sex: Female
  Weight: 64 kg

DRUGS (11)
  1. PANTOPRAZOLE SODIUM. [Concomitant]
     Active Substance: PANTOPRAZOLE SODIUM
     Indication: PROPHYLAXIS AGAINST GASTROINTESTINAL ULCER
     Dosage: AT THE MORNING
     Route: 048
     Dates: end: 20170123
  2. KORODIN [Concomitant]
     Active Substance: CAMPHOR (SYNTHETIC)\MENTHOL
     Indication: FATIGUE
     Dosage: UNK
     Route: 065
  3. IBUPROFEN 600MG [Suspect]
     Active Substance: IBUPROFEN
     Indication: EPICONDYLITIS
     Dosage: 600 MILLIGRAM, TWO-THREE TIMES DAILY
     Route: 048
     Dates: start: 20161024, end: 20161229
  4. IBUPROFEN 600MG [Suspect]
     Active Substance: IBUPROFEN
     Indication: BACK PAIN
     Dosage: UNK
     Route: 048
     Dates: start: 20161024, end: 20170123
  5. PEPPERMINT OIL [Concomitant]
     Active Substance: PEPPERMINT OIL
     Indication: DYSPEPSIA
     Dosage: UNK
     Route: 065
  6. ESMYA [Suspect]
     Active Substance: ULIPRISTAL ACETATE
     Indication: UTERINE LEIOMYOMA
     Dosage: 5 MILLIGRAM, ONCE A DAY
     Route: 048
     Dates: start: 201611, end: 20170123
  7. ESMYA [Suspect]
     Active Substance: ULIPRISTAL ACETATE
     Indication: DYSMENORRHOEA
  8. ORTOTON [Concomitant]
     Indication: HYPOTONIA
     Dosage: UNK 2 ONCE A DAY (AT THE EVENING)
     Route: 048
     Dates: end: 20170123
  9. NOVALGIN [Concomitant]
     Indication: PRODUCT USED FOR UNKNOWN INDICATION
     Dosage: UNK
     Route: 065
     Dates: start: 20161230, end: 20170123
  10. IBUPROFEN 600MG [Suspect]
     Active Substance: IBUPROFEN
     Indication: DYSMENORRHOEA
     Dosage: UNK
     Route: 065
  11. KORODIN [Concomitant]
     Active Substance: CAMPHOR (SYNTHETIC)\MENTHOL
     Indication: EXERCISE TOLERANCE DECREASED
     Dosage: UNK
     Route: 065
     Dates: start: 20170120, end: 20170122

REACTIONS (20)
  - Blood urine [Recovered/Resolved]
  - Disturbance in attention [Unknown]
  - Constipation [Recovered/Resolved]
  - Anhedonia [Unknown]
  - Prothrombin time shortened [Unknown]
  - Influenza [Recovered/Resolved]
  - Fallopian tube cyst [Recovered/Resolved]
  - International normalised ratio decreased [Unknown]
  - Ovarian cyst [Recovered/Resolved]
  - Autoimmune hepatitis [Recovered/Resolved]
  - Acute hepatic failure [Recovered/Resolved]
  - Hepatic cyst [Recovered/Resolved]
  - Renal cyst [Recovered/Resolved]
  - Gastrooesophageal reflux disease [Recovered/Resolved]
  - Anxiety [Unknown]
  - Panic attack [Unknown]
  - Drug-induced liver injury [Recovered/Resolved]
  - Blood cholesterol increased [Unknown]
  - Mood swings [Unknown]
  - Menorrhagia [Unknown]

NARRATIVE: CASE EVENT DATE: 201612
